FAERS Safety Report 12845479 (Version 1)
Quarter: 2016Q4

REPORT INFORMATION
  Report Type: Spontaneous
  Country: US (occurrence: US)
  Receive Date: 20161013
  Receipt Date: 20161013
  Transmission Date: 20170207
  Serious: No
  Sender: FDA-Public Use
  Company Number: US-JAZZ-2016-US-013785

PATIENT
  Age: 34 Year
  Sex: Male

DRUGS (6)
  1. MODAFINIL. [Concomitant]
     Active Substance: MODAFINIL
  2. ANASTROZOLE. [Concomitant]
     Active Substance: ANASTROZOLE
  3. VITAMIN C [Concomitant]
     Active Substance: ASCORBIC ACID
  4. XYREM [Suspect]
     Active Substance: SODIUM OXYBATE
     Indication: NARCOLEPSY
     Dosage: 2.25 G, BID
     Route: 048
     Dates: start: 201607
  5. TESTOSTERONE CYPIONATE. [Concomitant]
     Active Substance: TESTOSTERONE CYPIONATE
  6. VITAMIN D3 [Concomitant]
     Active Substance: CHOLECALCIFEROL

REACTIONS (1)
  - Nasopharyngitis [Unknown]

NARRATIVE: CASE EVENT DATE: 201607
